FAERS Safety Report 25417117 (Version 3)
Quarter: 2025Q2

REPORT INFORMATION
  Report Type: Spontaneous
  Country: JP (occurrence: JP)
  Receive Date: 20250610
  Receipt Date: 20250627
  Transmission Date: 20250716
  Serious: Yes (Hospitalization, Other)
  Sender: CATALYST PHARMA
  Company Number: JP-CATALYSTPHARMACEUTICALPARTNERS-JP-CATA-25-00813

PATIENT
  Sex: Female

DRUGS (7)
  1. FYCOMPA [Suspect]
     Active Substance: PERAMPANEL
     Indication: Epilepsy
     Dosage: 2.0 MILLIGRAM(S) (2 MILLIGRAM(S), 1 IN 1 DAY) (SOLUTION FOR INJECTION)
     Route: 065
     Dates: start: 20250425, end: 20250428
  2. FYCOMPA [Suspect]
     Active Substance: PERAMPANEL
     Dosage: 4.0 MILLIGRAM(S) (4 MILLIGRAM(S), 1 IN 1 DAY)
     Route: 048
     Dates: start: 20250429, end: 20250523
  3. LEVETIRACETAM [Suspect]
     Active Substance: LEVETIRACETAM
     Indication: Epilepsy
     Dosage: 3000 MILLIGRAM(S) (1500 MILLIGRAM(S), 1 IN 12 HOUR)
     Route: 048
     Dates: start: 20250425, end: 20250521
  4. CLARITHROMYCIN [Interacting]
     Active Substance: CLARITHROMYCIN
     Indication: Respiratory disorder
     Route: 048
     Dates: end: 2025
  5. CLARITHROMYCIN [Interacting]
     Active Substance: CLARITHROMYCIN
     Indication: Asthma
  6. LACOSAMIDE [Suspect]
     Active Substance: LACOSAMIDE
     Indication: Epilepsy
     Dosage: 400.0 MILLIGRAM(S) (200 MILLIGRAM(S), 1 IN 12 HOUR)
     Route: 048
     Dates: start: 20250524
  7. BRIVIACT [Concomitant]
     Active Substance: BRIVARACETAM
     Indication: Epilepsy
     Dosage: 50.0 MILLIGRAM(S) (25 MILLIGRAM(S), 1 IN 12 HOUR)
     Route: 048
     Dates: start: 20250524

REACTIONS (11)
  - Affective disorder [Not Recovered/Not Resolved]
  - Suicide attempt [Unknown]
  - Nervousness [Unknown]
  - Dizziness [Unknown]
  - Headache [Unknown]
  - Ataxia [Unknown]
  - Balance disorder [Unknown]
  - Dysarthria [Unknown]
  - Abnormal behaviour [Unknown]
  - Drug interaction [Not Recovered/Not Resolved]
  - Off label use [Unknown]

NARRATIVE: CASE EVENT DATE: 20250101
